FAERS Safety Report 6300665-3 (Version None)
Quarter: 2009Q3

REPORT INFORMATION
  Report Type: 
  Country: None (occurrence: None)
  Receive Date: 20090806
  Receipt Date: 20090727
  Transmission Date: 20100115
  Serious: Yes (Other)
  Sender: FDA-Public Use
  Company Number: GB-BAUSCH-2009BL003765

PATIENT
  Age: 68 Year
  Sex: Female

DRUGS (4)
  1. PREDNISOLONE [Suspect]
     Indication: INTERSTITIAL LUNG DISEASE
  2. AZATHIOPRINE [Suspect]
     Indication: INTERSTITIAL LUNG DISEASE
  3. AZATHIOPRINE [Suspect]
  4. AZATHIOPRINE [Suspect]

REACTIONS (2)
  - CUSHINGOID [None]
  - PANCYTOPENIA [None]
